FAERS Safety Report 17275819 (Version 2)
Quarter: 2020Q1

REPORT INFORMATION
  Report Type: Spontaneous
  Country: CN (occurrence: CN)
  Receive Date: 20200116
  Receipt Date: 20200119
  Transmission Date: 20200409
  Serious: Yes (Other)
  Sender: FDA-Public Use
  Company Number: CN-JNJFOC-20200114946

PATIENT

DRUGS (2)
  1. IBUPROFEN. [Suspect]
     Active Substance: IBUPROFEN
     Indication: PATENT DUCTUS ARTERIOSUS
     Dosage: ON 1ST DAY
     Route: 048
  2. IBUPROFEN. [Suspect]
     Active Substance: IBUPROFEN
     Dosage: ON THE SECOND AND THIRD DAY
     Route: 048

REACTIONS (10)
  - Feeding intolerance [Unknown]
  - Gastric residual assessment [Unknown]
  - Abdominal distension [Unknown]
  - Product use in unapproved indication [Unknown]
  - Bronchopulmonary dysplasia [Unknown]
  - Gastric disorder [Unknown]
  - Vomiting [Unknown]
  - Off label use [Unknown]
  - Gastric haemorrhage [Unknown]
  - Therapeutic response unexpected [Unknown]
